FAERS Safety Report 8056502-2 (Version None)
Quarter: 2012Q1

REPORT INFORMATION
  Report Type: 
  Country: None (occurrence: None)
  Receive Date: 20120119
  Receipt Date: 20120116
  Transmission Date: 20120608
  Serious: Yes (Other)
  Sender: FDA-Public Use
  Company Number: US-PFIZER INC-2012012079

PATIENT
  Sex: Female
  Weight: 87.075 kg

DRUGS (3)
  1. MAXALT [Concomitant]
     Indication: MIGRAINE
     Dosage: UNK
  2. LYRICA [Suspect]
     Indication: FIBROMYALGIA
     Dosage: 50 MG, 2X/DAY
     Dates: start: 20110201
  3. BUSPIRONE HCL [Concomitant]
     Indication: ANXIETY
     Dosage: UNK

REACTIONS (2)
  - CARDIAC DISORDER [None]
  - VITAMIN D DEFICIENCY [None]
